FAERS Safety Report 9113601 (Version 2)
Quarter: 2013Q1

REPORT INFORMATION
  Report Type: Report from Study
  Country: US (occurrence: US)
  Receive Date: 20130208
  Receipt Date: 20130226
  Transmission Date: 20140127
  Serious: Yes (Hospitalization)
  Sender: FDA-Public Use
  Company Number: US-MILLENNIUM PHARMACEUTICALS, INC.-2013-00858

PATIENT
  Age: 81 Year
  Sex: Female
  Weight: 88.44 kg

DRUGS (25)
  1. VELCADE [Suspect]
     Indication: MANTLE CELL LYMPHOMA
     Dosage: 2.5 MG, CYCLIC
     Route: 042
     Dates: start: 20130118, end: 20130125
  2. LENALIDOMIDE [Suspect]
     Indication: MANTLE CELL LYMPHOMA
     Dosage: 10 MG, CYCLIC
     Route: 048
     Dates: start: 20130118, end: 20130127
  3. RITUXIMAB [Suspect]
     Indication: MANTLE CELL LYMPHOMA
     Dosage: 728 MG, CYCLIC
     Route: 042
     Dates: start: 20130118, end: 20130125
  4. ATIVAN [Concomitant]
     Indication: GENERALISED ANXIETY DISORDER
     Dosage: 0.5 MG, PRN
     Dates: start: 19950101
  5. ALLOPURINOL [Concomitant]
     Indication: PROPHYLAXIS
     Dosage: 300 MG, QD
     Dates: start: 20130117
  6. ASPIRIN [Concomitant]
     Indication: PROPHYLAXIS
     Dosage: 81 MG, QD
     Dates: start: 20000101
  7. LIPITOR [Concomitant]
     Indication: HYPERTENSION
     Dosage: 20 MG, QD
     Dates: start: 19900101
  8. CARVEDILOL [Concomitant]
     Indication: HYPERTENSION
     Dosage: 12.5 MG, BID
     Dates: start: 19900101
  9. ORACEA [Concomitant]
     Indication: ROSACEA
     Dosage: 40 MG, QD
     Dates: start: 20100101
  10. NEXIUM                             /01479302/ [Concomitant]
     Indication: GASTROOESOPHAGEAL REFLUX DISEASE
     Dosage: 40 MG, QD
     Dates: start: 20020101
  11. LASIX                              /00032601/ [Concomitant]
     Indication: OEDEMA
     Dosage: 40 MG, QD
     Dates: start: 19700101
  12. NORTRIPTYLINE [Concomitant]
     Indication: PANIC DISORDER
     Dosage: 50 MG, QD
     Dates: start: 19950101
  13. NORTRIPTYLINE [Concomitant]
     Indication: ADJUSTMENT DISORDER
  14. COLACE [Concomitant]
     Indication: CONSTIPATION
     Dosage: UNK, PRN
     Dates: start: 20130121
  15. FLEET ENEMA                        /01605601/ [Concomitant]
     Indication: CONSTIPATION
     Dosage: UNK UNK, PRN
     Dates: start: 20130125
  16. MAGNESIUM CITRATE [Concomitant]
     Indication: CONSTIPATION
     Dosage: 30 MG, PRN
     Dates: start: 20130125
  17. ZOFRAN                             /00955301/ [Concomitant]
     Indication: NAUSEA
     Dosage: 8 MG, PRN
     Dates: start: 20130118
  18. MECLIZINE                          /00072801/ [Concomitant]
     Indication: MENIERE^S DISEASE
     Dosage: 25 MG, TID
     Dates: start: 19930101
  19. VITAMIN B12                        /00056201/ [Concomitant]
     Indication: SUPPLEMENTATION THERAPY
     Dosage: UNK UNK, QD
     Dates: start: 20090101
  20. IMIQUIMOD [Concomitant]
     Indication: ACTINIC KERATOSIS
     Dosage: 3.75 %, UNK
     Dates: start: 2011
  21. FERREX [Concomitant]
     Indication: SUPPLEMENTATION THERAPY
     Dosage: 150 MG, QD
     Dates: start: 19900101
  22. VITAMIN C                          /00008001/ [Concomitant]
     Indication: SUPPLEMENTATION THERAPY
     Dosage: 1000 MG, QD
     Dates: start: 19900101
  23. GOLYTELY                           /02140001/ [Concomitant]
     Indication: CONSTIPATION
     Dosage: 227.1 MG, PRN
     Dates: start: 19800101
  24. METROGEL [Concomitant]
     Indication: ROSACEA
     Dosage: 1 %, QD
     Dates: start: 19980101
  25. AZITHROMYCIN [Concomitant]
     Indication: SINUSITIS
     Dosage: 300 MG, QD
     Dates: start: 20130117

REACTIONS (1)
  - Pneumonia [Not Recovered/Not Resolved]
